FAERS Safety Report 21605529 (Version 1)
Quarter: 2022Q4

REPORT INFORMATION
  Report Type: Spontaneous
  Country: FR (occurrence: FR)
  Receive Date: 20221116
  Receipt Date: 20221116
  Transmission Date: 20230113
  Serious: Yes (Hospitalization, Other)
  Sender: FDA-Public Use
  Company Number: None

PATIENT
  Age: 38 Year
  Sex: Female

DRUGS (3)
  1. ALPRAZOLAM [Suspect]
     Active Substance: ALPRAZOLAM
     Indication: Poisoning deliberate
     Dosage: UNIT DOSE :26.25 MG,  FREQUENCY TIME : 1 TOTAL , DURATION :  1 DAY
     Route: 065
     Dates: start: 20211221, end: 20211221
  2. ACETAMINOPHEN [Suspect]
     Active Substance: ACETAMINOPHEN
     Indication: Poisoning deliberate
     Dosage: 33G PARACETAMOL, UNIT DOSE :  33 GRAM,  FREQUENCY TIME : 1 TOTAL , DURATION :  1 DAY
     Route: 065
     Dates: start: 20211221, end: 20211221
  3. TRAMADOL [Suspect]
     Active Substance: TRAMADOL
     Indication: Poisoning deliberate
     Dosage: UNIT DOSE : 1125 MG,  FREQUENCY TIME : 1 TOTAL ,DURATION :  1 DAY
     Route: 065
     Dates: start: 20211221, end: 20211221

REACTIONS (7)
  - Hypothermia [Recovered/Resolved]
  - Sinus bradycardia [Recovered/Resolved]
  - Rhabdomyolysis [Recovering/Resolving]
  - Hepatic cytolysis [Recovering/Resolving]
  - Altered state of consciousness [Recovered/Resolved]
  - Toxicity to various agents [Recovered/Resolved]
  - Vomiting [Recovered/Resolved]

NARRATIVE: CASE EVENT DATE: 20211222
